FAERS Safety Report 12580833 (Version 2)
Quarter: 2016Q3

REPORT INFORMATION
  Report Type: Spontaneous
  Country: IT (occurrence: IT)
  Receive Date: 20160721
  Receipt Date: 20160809
  Transmission Date: 20161109
  Serious: Yes (Other)
  Sender: FDA-Public Use
  Company Number: IT-MYLANLABS-2016M1029247

PATIENT

DRUGS (9)
  1. LINEZOLID. [Suspect]
     Active Substance: LINEZOLID
     Indication: MENINGITIS BACTERIAL
     Dosage: 1200 MG, QD
     Route: 048
     Dates: start: 20160504, end: 20160523
  2. TIGECYCLINE. [Suspect]
     Active Substance: TIGECYCLINE
     Indication: BRAIN ABSCESS
  3. SULFAMETHOXAZOLE AND TRIMETHOPRIM [Suspect]
     Active Substance: SULFAMETHOXAZOLE\TRIMETHOPRIM
     Indication: BRAIN ABSCESS
  4. TIGECYCLINE. [Suspect]
     Active Substance: TIGECYCLINE
     Indication: ENCEPHALITIS
  5. LINEZOLID. [Suspect]
     Active Substance: LINEZOLID
     Indication: ENCEPHALITIS
  6. LINEZOLID. [Suspect]
     Active Substance: LINEZOLID
     Indication: BRAIN ABSCESS
  7. TIGECYCLINE. [Suspect]
     Active Substance: TIGECYCLINE
     Indication: MENINGITIS BACTERIAL
     Dosage: 200 MG, QD
     Route: 058
     Dates: start: 20160504, end: 20160523
  8. SULFAMETHOXAZOLE AND TRIMETHOPRIM [Suspect]
     Active Substance: SULFAMETHOXAZOLE\TRIMETHOPRIM
     Indication: MENINGITIS BACTERIAL
     Dosage: UNK UNK, QD
     Route: 048
     Dates: start: 20160523, end: 20160602
  9. SULFAMETHOXAZOLE AND TRIMETHOPRIM [Suspect]
     Active Substance: SULFAMETHOXAZOLE\TRIMETHOPRIM
     Indication: ENCEPHALITIS

REACTIONS (3)
  - Thrombocytopenia [Recovered/Resolved]
  - Hypofibrinogenaemia [Recovered/Resolved]
  - Rash [Recovered/Resolved]

NARRATIVE: CASE EVENT DATE: 20160601
